FAERS Safety Report 24969208 (Version 1)
Quarter: 2025Q1

REPORT INFORMATION
  Report Type: Spontaneous
  Country: US (occurrence: US)
  Receive Date: 20250214
  Receipt Date: 20250214
  Transmission Date: 20250409
  Serious: No
  Sender: AMNEAL
  Company Number: US-AMNEAL PHARMACEUTICALS-2024-AMRX-01391

PATIENT
  Sex: Male

DRUGS (1)
  1. RYTARY [Suspect]
     Active Substance: CARBIDOPA\LEVODOPA
     Indication: Parkinson^s disease
     Dosage: 23.75/95 MG, 3 CAPSULES, 2 /DAY
     Route: 048
     Dates: start: 20240315, end: 20240415

REACTIONS (3)
  - Therapeutic response shortened [Unknown]
  - Product substitution issue [Unknown]
  - No adverse event [Unknown]
